FAERS Safety Report 20683700 (Version 1)
Quarter: 2022Q2

REPORT INFORMATION
  Report Type: Other
  Country: CN (occurrence: None)
  Receive Date: 20220407
  Receipt Date: 20220407
  Transmission Date: 20220721
  Serious: Yes (Other)
  Sender: FDA-Public Use
  Company Number: CN-ROCHE-2013675

PATIENT
  Sex: Female
  Weight: 54 kg

DRUGS (2)
  1. AVASTIN [Suspect]
     Active Substance: BEVACIZUMAB
     Indication: Rectal adenocarcinoma
     Route: 041
     Dates: start: 20170606
  2. AVASTIN [Suspect]
     Active Substance: BEVACIZUMAB
     Route: 041
     Dates: start: 20190403

REACTIONS (3)
  - Gastrointestinal disorder [Unknown]
  - Ascites [Not Recovered/Not Resolved]
  - Pelvic fluid collection [Not Recovered/Not Resolved]

NARRATIVE: CASE EVENT DATE: 20220104
